FAERS Safety Report 20637650 (Version 1)
Quarter: 2022Q1

REPORT INFORMATION
  Report Type: Spontaneous
  Country: US (occurrence: None)
  Receive Date: 20220322
  Receipt Date: 20220322
  Transmission Date: 20220424
  Serious: No
  Sender: FDA-Public Use
  Company Number: None

PATIENT
  Age: 45 Year
  Sex: Female
  Weight: 72 kg

DRUGS (2)
  1. BACTINE MAX [Suspect]
     Active Substance: BENZALKONIUM CHLORIDE\LIDOCAINE HYDROCHLORIDE
     Indication: Antibiotic prophylaxis
     Dates: start: 20220220, end: 20220224
  2. BACTINE MAX [Suspect]
     Active Substance: BENZALKONIUM CHLORIDE\LIDOCAINE HYDROCHLORIDE

REACTIONS (5)
  - Product name confusion [None]
  - Application site pain [None]
  - Application site erythema [None]
  - Application site swelling [None]
  - Application site warmth [None]

NARRATIVE: CASE EVENT DATE: 20220223
